FAERS Safety Report 5703139-3 (Version None)
Quarter: 2008Q2

REPORT INFORMATION
  Report Type: 
  Country: None (occurrence: None)
  Receive Date: 20080411
  Receipt Date: 20080404
  Transmission Date: 20081010
  Serious: Yes (Other)
  Sender: FDA-Public Use
  Company Number: US-PURDUE-USA_2007_0028313

PATIENT
  Sex: Male
  Weight: 141 kg

DRUGS (44)
  1. OXYFAST CONCENTRATE 20 MG/ML [Concomitant]
     Indication: BREAKTHROUGH PAIN
     Dosage: 1 UNK, Q4- 6H PRN
  2. OXYIR CAPSULES 5 MG [Concomitant]
     Indication: BREAKTHROUGH PAIN
  3. PERCOCET [Concomitant]
     Indication: BREAKTHROUGH PAIN
     Dosage: 10 MG, Q4- 6H PRN
  4. ACETAMINOPHEN AND OXYCODONE HCL [Concomitant]
     Indication: BREAKTHROUGH PAIN
  5. ACCOLATE [Concomitant]
     Indication: ASTHMA
     Dosage: 20 MG, DAILY
  6. AXID [Concomitant]
     Indication: GASTROOESOPHAGEAL REFLUX DISEASE
  7. NEXIUM [Concomitant]
  8. CELEXA [Concomitant]
     Dosage: 20 MG, DAILY
  9. LEVOXYL [Concomitant]
     Indication: THYROID DISORDER
  10. DIAZEPAM [Concomitant]
     Dosage: 10 MG, BID
  11. UNIPHYL TABLETS [Concomitant]
  12. REGLAN [Concomitant]
     Dosage: 10 MG, UNK
  13. GUAIFENESIN [Concomitant]
     Dosage: 1200 UNK, DAILY
  14. ALBUTEROL [Concomitant]
  15. ATROVENT [Concomitant]
  16. FLOVENT [Concomitant]
  17. FIORICET [Concomitant]
     Indication: CLUSTER HEADACHE
  18. CLONAZEPAM [Concomitant]
     Dosage: UNK, HS
  19. SKELAXIN [Concomitant]
  20. SOMA [Concomitant]
     Indication: INSOMNIA
     Dosage: 350 UNK, TID
  21. PAXIL [Concomitant]
     Dosage: 40 UNK, UNK
  22. AMBIEN [Concomitant]
     Dosage: 10 UNK, UNK
  23. ZANAFLEX [Concomitant]
  24. LIDOCAINE [Concomitant]
  25. ROXICODONE [Concomitant]
     Indication: BREAKTHROUGH PAIN
     Dosage: 30 MG, Q4H PRN
  26. NEURONTIN [Concomitant]
     Indication: CLUSTER HEADACHE
     Dosage: 600 MG, TID
  27. DEPO-MEDROL + LIDOCAINE [Concomitant]
     Indication: HEADACHE
  28. OXYGEN [Concomitant]
     Indication: OXYGEN SATURATION DECREASED
     Dosage: 3 L, MINUTE
     Route: 045
  29. MOTRIN [Concomitant]
  30. VIOXX [Concomitant]
  31. QUININE [Concomitant]
     Indication: MUSCLE SPASMS
  32. INDOMETHACIN [Concomitant]
     Indication: GOUT
  33. LASIX [Concomitant]
  34. NICOTINE [Concomitant]
     Indication: SMOKING CESSATION THERAPY
     Route: 062
  35. ALPRAZOLAM [Concomitant]
  36. LISINOPRIL [Concomitant]
  37. POTASSIUM CHLORIDE [Concomitant]
  38. PULMICORT [Concomitant]
  39. SYNTHROID [Concomitant]
  40. REQUIP [Concomitant]
     Indication: RESTLESS LEGS SYNDROME
  41. PROZAC [Concomitant]
     Dosage: 20 UNK, TID
  42. ANTIBIOTICS [Concomitant]
     Indication: INFECTION
  43. METHADONE HCL [Concomitant]
     Dosage: UNK, UNK
     Dates: start: 20070801
  44. OXYCONTIN [Suspect]
     Indication: BACK PAIN
     Dosage: 20 MG, SEE TEXT
     Dates: start: 19990101

REACTIONS (50)
  - ANGIOEDEMA [None]
  - ANORECTAL DISCOMFORT [None]
  - ARTHRALGIA [None]
  - ASTHMA [None]
  - BACK PAIN [None]
  - BURNING SENSATION [None]
  - CARPAL TUNNEL SYNDROME [None]
  - COCCYDYNIA [None]
  - CONTUSION [None]
  - DEPRESSED MOOD [None]
  - DRUG ABUSE [None]
  - DRUG DEPENDENCE [None]
  - DRUG TOLERANCE INCREASED [None]
  - EYE DISCHARGE [None]
  - EYE PAIN [None]
  - FALL [None]
  - GAIT DISTURBANCE [None]
  - GOUT [None]
  - GYNAECOMASTIA [None]
  - HEADACHE [None]
  - HYPOAESTHESIA [None]
  - INADEQUATE ANALGESIA [None]
  - INJURY [None]
  - JOINT LOCK [None]
  - MALAISE [None]
  - MUSCLE SPASMS [None]
  - MUSCULOSKELETAL PAIN [None]
  - NECK PAIN [None]
  - NEURALGIA [None]
  - NEUROPATHY PERIPHERAL [None]
  - OEDEMA PERIPHERAL [None]
  - OSTEONECROSIS [None]
  - OXYGEN SATURATION DECREASED [None]
  - PAIN [None]
  - PAIN IN EXTREMITY [None]
  - PARAESTHESIA [None]
  - PEDAL PULSE ABNORMAL [None]
  - PHARYNGITIS [None]
  - PLANTAR FASCIITIS [None]
  - POOR QUALITY SLEEP [None]
  - RENAL PAIN [None]
  - RESTLESS LEGS SYNDROME [None]
  - SINUSITIS [None]
  - SOMNOLENCE [None]
  - TOOTH DISORDER [None]
  - TOOTHACHE [None]
  - UMBILICAL HERNIA PERFORATION [None]
  - VENOUS STASIS [None]
  - WALKING AID USER [None]
  - WEIGHT DECREASED [None]
